FAERS Safety Report 4394823-5 (Version None)
Quarter: 2004Q3

REPORT INFORMATION
  Report Type: 
  Country: None (occurrence: None)
  Receive Date: 20040706
  Receipt Date: 20040617
  Transmission Date: 20050211
  Serious: Yes (Other)
  Sender: FDA-Public Use
  Company Number: 8006531

PATIENT
  Age: 31 Year
  Sex: Male
  Weight: 73 kg

DRUGS (2)
  1. KEPPRA [Suspect]
     Indication: EPILEPSY
     Dosage: 1000 MG/ D PO
     Route: 048
     Dates: start: 20030807
  2. MELOXICAM [Concomitant]

REACTIONS (7)
  - CONTUSION [None]
  - DEPRESSION [None]
  - DRUG INTERACTION [None]
  - HEAD INJURY [None]
  - HEADACHE [None]
  - LOSS OF CONSCIOUSNESS [None]
  - WEIGHT INCREASED [None]
